FAERS Safety Report 9181100 (Version 2)
Quarter: 2013Q1

REPORT INFORMATION
  Report Type: Spontaneous
  Country: US (occurrence: US)
  Receive Date: 20130322
  Receipt Date: 20130322
  Transmission Date: 20140127
  Serious: No
  Sender: FDA-Public Use
  Company Number: US-MYLANLABS-2012S1004890

PATIENT
  Age: 51 Year
  Sex: Female

DRUGS (7)
  1. EMSAM [Suspect]
     Indication: ANXIETY
     Dosage: CHANGE QDAY
     Route: 062
     Dates: start: 201110
  2. EMSAM [Suspect]
     Indication: DEPRESSION
     Dosage: CHANGE QDAY
     Route: 062
     Dates: start: 201110
  3. EMSAM [Suspect]
     Route: 062
  4. DIVALPROEX [Concomitant]
     Route: 048
  5. VITAMINS [Concomitant]
     Route: 048
  6. DEPLIN [Concomitant]
     Route: 048
  7. ALPRAZOLAM [Concomitant]

REACTIONS (8)
  - Dyspnoea [Not Recovered/Not Resolved]
  - Fluid retention [Not Recovered/Not Resolved]
  - Insomnia [Not Recovered/Not Resolved]
  - Weight increased [Not Recovered/Not Resolved]
  - Muscle fatigue [Not Recovered/Not Resolved]
  - Arthralgia [Not Recovered/Not Resolved]
  - Alopecia [Not Recovered/Not Resolved]
  - Bipolar disorder [Not Recovered/Not Resolved]
